FAERS Safety Report 23600350 (Version 1)
Quarter: 2024Q1

REPORT INFORMATION
  Report Type: Spontaneous
  Country: US (occurrence: US)
  Receive Date: 20240306
  Receipt Date: 20240306
  Transmission Date: 20240410
  Serious: No
  Sender: FDA-Public Use
  Company Number: US-ABBVIE-5660091

PATIENT
  Age: 75 Year
  Sex: Female

DRUGS (1)
  1. LATISSE [Suspect]
     Active Substance: BIMATOPROST
     Indication: Product used for unknown indication
     Dosage: FORM STRENGTH:0.3MG/ML
     Route: 047
     Dates: start: 202402, end: 202402

REACTIONS (1)
  - Blepharal pigmentation [Unknown]

NARRATIVE: CASE EVENT DATE: 20240201
